FAERS Safety Report 23534851 (Version 1)
Quarter: 2024Q1

REPORT INFORMATION
  Report Type: Spontaneous
  Country: JP (occurrence: JP)
  Receive Date: 20240217
  Receipt Date: 20240217
  Transmission Date: 20240410
  Serious: Yes (Hospitalization, Other)
  Sender: FDA-Public Use
  Company Number: JP-Accord-403243

PATIENT
  Age: 47 Year
  Sex: Female

DRUGS (5)
  1. CLOZAPINE [Interacting]
     Active Substance: CLOZAPINE
     Indication: Catatonia
     Dosage: 400-450 MG/D
  2. SUVOREXANT [Interacting]
     Active Substance: SUVOREXANT
     Indication: Catatonia
  3. LITHIUM CARBONATE [Concomitant]
     Active Substance: LITHIUM CARBONATE
     Indication: Catatonia
  4. DIAZEPAM [Concomitant]
     Active Substance: DIAZEPAM
     Indication: Catatonia
  5. ESZOPICLONE [Concomitant]
     Active Substance: ESZOPICLONE
     Indication: Catatonia

REACTIONS (6)
  - Drug interaction [Recovered/Resolved]
  - Constipation [Unknown]
  - Drug level increased [Recovered/Resolved]
  - Dysarthria [Unknown]
  - Abdominal symptom [Unknown]
  - Dizziness [Unknown]
